FAERS Safety Report 7911158-1 (Version None)
Quarter: 2011Q4

REPORT INFORMATION
  Report Type: 
  Country: None (occurrence: None)
  Receive Date: 20111114
  Receipt Date: 20111031
  Transmission Date: 20120403
  Serious: Yes (Hospitalization)
  Sender: FDA-Public Use
  Company Number: US-JNJFOC-20111003549

PATIENT
  Age: 40 Year
  Sex: Female

DRUGS (4)
  1. ALBUTEROL [Concomitant]
     Dosage: DOSE: 0.083%
     Route: 065
  2. LIALDA [Concomitant]
     Route: 065
  3. REMICADE [Suspect]
     Indication: CROHN'S DISEASE
     Route: 042
     Dates: start: 20090101
  4. ADVAIR DISKUS 100/50 [Concomitant]
     Dosage: DOSE: 1 PUFF TWICE A DAY- DISKUS 500/50
     Route: 065

REACTIONS (4)
  - STAPHYLOCOCCAL INFECTION [None]
  - CROHN'S DISEASE [None]
  - PNEUMONIA [None]
  - CIRCULATORY COLLAPSE [None]
